FAERS Safety Report 23162254 (Version 3)
Quarter: 2023Q4

REPORT INFORMATION
  Report Type: Report from Study
  Country: US (occurrence: US)
  Receive Date: 20231109
  Receipt Date: 20231203
  Transmission Date: 20240110
  Serious: No
  Sender: FDA-Public Use
  Company Number: US-002147023-NVSC2023US237838

PATIENT
  Sex: Male

DRUGS (1)
  1. ENTRESTO [Suspect]
     Active Substance: SACUBITRIL\VALSARTAN
     Indication: Product used for unknown indication
     Dosage: UNK, BID
     Route: 065
     Dates: start: 202301

REACTIONS (6)
  - Dehydration [Recovering/Resolving]
  - Hypertension [Unknown]
  - Blood potassium increased [Recovering/Resolving]
  - Product dose omission issue [Unknown]
  - Weight decreased [Unknown]
  - Cough [Unknown]
